FAERS Safety Report 8556394-9 (Version None)
Quarter: 2012Q3

REPORT INFORMATION
  Report Type: 
  Country: None (occurrence: None)
  Receive Date: 20120801
  Receipt Date: 20120726
  Transmission Date: 20120928
  Serious: Yes (Other)
  Sender: FDA-Public Use
  Company Number: PHHY2012MX065252

PATIENT
  Sex: Female

DRUGS (7)
  1. MAGALDRATE [Concomitant]
     Indication: GASTROOESOPHAGEAL REFLUX DISEASE
     Dates: start: 20110101
  2. FAMOTIDINE [Concomitant]
     Indication: GASTROOESOPHAGEAL REFLUX DISEASE
     Dates: start: 20110101
  3. PAXIL [Concomitant]
     Indication: FATIGUE
     Dosage: 1 DF, DAILY
     Dates: start: 20040101, end: 20111201
  4. ZOLEDRONOC ACID [Suspect]
     Indication: OSTEOPOROSIS
     Dosage: 5 MG/ 100 ML, EACH YEAR
     Route: 042
     Dates: start: 20100101
  5. SIMETHICONE [Concomitant]
     Indication: GASTROOESOPHAGEAL REFLUX DISEASE
     Dates: start: 20110101
  6. ZELMAC [Concomitant]
     Indication: COLITIS
     Dosage: 1 DF, UNK
  7. ALPRAZOLAM [Concomitant]
     Indication: FATIGUE
     Dosage: 1 DF, DAILY
     Dates: start: 20040101, end: 20111201

REACTIONS (8)
  - BLOOD POTASSIUM DECREASED [None]
  - GENERAL PHYSICAL HEALTH DETERIORATION [None]
  - HYPERHIDROSIS [None]
  - CHILLS [None]
  - BONE PAIN [None]
  - MYALGIA [None]
  - BLOOD ELECTROLYTES DECREASED [None]
  - NAUSEA [None]
